FAERS Safety Report 9321913 (Version 1)
Quarter: 2013Q2

REPORT INFORMATION
  Report Type: Spontaneous
  Country: US (occurrence: None)
  Receive Date: 20130530
  Receipt Date: 20130530
  Transmission Date: 20140414
  Serious: Yes (Life-Threatening, Hospitalization)
  Sender: FDA-Public Use
  Company Number: None

PATIENT
  Age: 16 Year
  Sex: Female
  Weight: 81.19 kg

DRUGS (1)
  1. MIRALAX [Suspect]
     Indication: COLONOSCOPY
     Dosage: LESS THAN 1 -10G- 1 TIME PO
     Route: 048
     Dates: start: 20130520, end: 20130520

REACTIONS (7)
  - Sensation of foreign body [None]
  - Swollen tongue [None]
  - Lip swelling [None]
  - Urticaria [None]
  - Dyspnoea [None]
  - Loss of consciousness [None]
  - Anaphylactic reaction [None]
